FAERS Safety Report 8115811-9 (Version None)
Quarter: 2012Q1

REPORT INFORMATION
  Report Type: 
  Country: None (occurrence: None)
  Receive Date: 20120206
  Receipt Date: 20120129
  Transmission Date: 20120608
  Serious: Yes (Other)
  Sender: FDA-Public Use
  Company Number: DK-VERTEX PHARMACEUTICALS INC.-000000000000000090

PATIENT
  Sex: Female

DRUGS (7)
  1. INCIVO (TELAPREVIR) [Suspect]
     Indication: HEPATITIS C
     Dosage: DOSAGE FORM: TABLET
     Dates: start: 20111220, end: 20111227
  2. ESCITALOPRAM [Concomitant]
     Dates: start: 20101001
  3. PEG-INTRON [Concomitant]
     Dates: start: 20120110
  4. ZOLPIDEM [Concomitant]
     Dates: start: 20110901
  5. PEG-INTRON [Concomitant]
     Dates: start: 20111220
  6. REBETOL [Concomitant]
     Dates: start: 20111220
  7. REBETOL [Concomitant]
     Dates: start: 20120110

REACTIONS (2)
  - RASH [None]
  - EOSINOPHILIA [None]
